FAERS Safety Report 13767447 (Version 2)
Quarter: 2017Q3

REPORT INFORMATION
  Report Type: Report from Study
  Country: None (occurrence: GB)
  Receive Date: 20170719
  Receipt Date: 20170913
  Transmission Date: 20171127
  Serious: Yes (Disabling, Other)
  Sender: FDA-Public Use
  Company Number: GB-ABBVIE-17K-167-2038335-00

PATIENT
  Age: 71 Year
  Sex: Male
  Weight: 96 kg

DRUGS (1)
  1. HUMIRA [Suspect]
     Active Substance: ADALIMUMAB
     Indication: RHEUMATOID ARTHRITIS
     Route: 058
     Dates: start: 20050620, end: 20170320

REACTIONS (6)
  - Weight decreased [Unknown]
  - Prostate cancer [Not Recovered/Not Resolved]
  - C-reactive protein increased [Unknown]
  - Gamma-glutamyltransferase increased [Unknown]
  - Protein total increased [Unknown]
  - Decreased appetite [Unknown]

NARRATIVE: CASE EVENT DATE: 20170317
